FAERS Safety Report 17291615 (Version 1)
Quarter: 2020Q1

REPORT INFORMATION
  Report Type: Spontaneous
  Country: US (occurrence: US)
  Receive Date: 20200117
  Receipt Date: 20200117
  Transmission Date: 20200409
  Serious: Yes (Hospitalization)
  Sender: FDA-Public Use
  Company Number: None

PATIENT
  Age: 64 Year
  Sex: Female

DRUGS (3)
  1. LENVIMA 20MG [Concomitant]
     Dates: start: 20200104, end: 20200115
  2. LENVIMA [Suspect]
     Active Substance: LENVATINIB
     Indication: NEOPLASM MALIGNANT
     Route: 048
     Dates: start: 20200104, end: 20200115
  3. LENVIMA [Suspect]
     Active Substance: LENVATINIB
     Indication: NEUTROPENIA
     Route: 048
     Dates: start: 20200104, end: 20200115

REACTIONS (9)
  - Urinary tract infection [None]
  - Nausea [None]
  - Abdominal pain [None]
  - Decreased appetite [None]
  - Diarrhoea [None]
  - Vomiting [None]
  - Colitis [None]
  - Hypertension [None]
  - Fatigue [None]

NARRATIVE: CASE EVENT DATE: 20200115
